FAERS Safety Report 20663858 (Version 2)
Quarter: 2022Q3

REPORT INFORMATION
  Report Type: Spontaneous
  Country: CA (occurrence: CA)
  Receive Date: 20220401
  Receipt Date: 20220712
  Transmission Date: 20221027
  Serious: Yes (Death, Hospitalization, Other)
  Sender: FDA-Public Use
  Company Number: CA-GLAXOSMITHKLINE-CA2022GSK058417

PATIENT

DRUGS (1)
  1. ZANTAC [Suspect]
     Active Substance: RANITIDINE HYDROCHLORIDE
     Indication: Dyspepsia
     Dosage: UNK
     Route: 065
     Dates: start: 2015, end: 2020

REACTIONS (10)
  - Death [Fatal]
  - Biliary obstruction [Unknown]
  - Cholangiocarcinoma [Unknown]
  - Bile duct cancer [Unknown]
  - Adenocarcinoma [Unknown]
  - Dilatation intrahepatic duct acquired [Unknown]
  - Jaundice [Unknown]
  - Hepatic mass [Unknown]
  - Hepatic lesion [Unknown]
  - Hepatomegaly [Unknown]
